FAERS Safety Report 8048343-7 (Version None)
Quarter: 2012Q1

REPORT INFORMATION
  Report Type: 
  Country: None (occurrence: None)
  Receive Date: 20120117
  Receipt Date: 20120111
  Transmission Date: 20120608
  Serious: No
  Sender: FDA-Public Use
  Company Number: US-PFIZER INC-2012008904

PATIENT
  Sex: Male
  Weight: 98.866 kg

DRUGS (1)
  1. EFFEXOR XR [Suspect]
     Indication: DEPRESSION
     Dosage: UNK, 1X/DAY
     Route: 048
     Dates: start: 20080101, end: 20111101

REACTIONS (1)
  - MALAISE [None]
